FAERS Safety Report 21873044 (Version 1)
Quarter: 2023Q1

REPORT INFORMATION
  Report Type: Spontaneous
  Country: US (occurrence: US)
  Receive Date: 20230117
  Receipt Date: 20230117
  Transmission Date: 20230417
  Serious: Yes (Death)
  Sender: FDA-Public Use
  Company Number: US-BAYER-2023A003695

PATIENT
  Age: 68 Year
  Sex: Female

DRUGS (7)
  1. CHLORPHENIRAMINE MALEATE [Suspect]
     Active Substance: CHLORPHENIRAMINE MALEATE
     Dosage: UNK
     Route: 065
  2. AMLODIPINE [Suspect]
     Active Substance: AMLODIPINE BESYLATE
  3. FLUOXETINE [Suspect]
     Active Substance: FLUOXETINE HYDROCHLORIDE
  4. RISPERIDONE [Suspect]
     Active Substance: RISPERIDONE
  5. TRAZODONE [Suspect]
     Active Substance: TRAZODONE HYDROCHLORIDE
  6. ALPRAZOLAM [Suspect]
     Active Substance: ALPRAZOLAM
  7. LURASIDONE [Suspect]
     Active Substance: LURASIDONE

REACTIONS (2)
  - Completed suicide [Fatal]
  - Toxicity to various agents [Fatal]
